FAERS Safety Report 16190324 (Version 1)
Quarter: 2019Q2

REPORT INFORMATION
  Report Type: Spontaneous
  Country: US (occurrence: US)
  Receive Date: 20190412
  Receipt Date: 20190412
  Transmission Date: 20190711
  Serious: No
  Sender: FDA-Public Use
  Company Number: US-PFIZER INC-2019155498

PATIENT
  Age: 47 Year
  Sex: Female
  Weight: 62.6 kg

DRUGS (1)
  1. LYRICA [Suspect]
     Active Substance: PREGABALIN
     Indication: NERVE INJURY
     Dosage: UNK, 1X/DAY
     Route: 048
     Dates: start: 201802, end: 20190404

REACTIONS (3)
  - Musculoskeletal discomfort [Unknown]
  - Weight increased [Unknown]
  - Back disorder [Unknown]

NARRATIVE: CASE EVENT DATE: 201803
